FAERS Safety Report 7997846-X (Version None)
Quarter: 2011Q4

REPORT INFORMATION
  Report Type: 
  Country: None (occurrence: None)
  Receive Date: 20111221
  Receipt Date: 20111209
  Transmission Date: 20120403
  Serious: Yes (Other)
  Sender: FDA-Public Use
  Company Number: PHEH2011US008886

PATIENT
  Sex: Male

DRUGS (23)
  1. TASIGNA [Suspect]
     Indication: CHRONIC MYELOID LEUKAEMIA
     Dosage: 400 MG, BID
     Route: 048
     Dates: start: 20100701, end: 20110112
  2. TASIGNA [Suspect]
     Route: 048
     Dates: start: 20110510, end: 20110516
  3. DILTIAZEM HCL [Concomitant]
  4. CARDIZEM [Concomitant]
  5. SYMBICORT [Concomitant]
  6. BUDESONIDE [Concomitant]
  7. ASPIRIN [Concomitant]
  8. HYTRIN [Concomitant]
  9. ALBUTEROL [Concomitant]
  10. PULMICORT [Concomitant]
  11. METOPROLOL TARTRATE [Concomitant]
  12. NORCO [Concomitant]
  13. BROVANA [Concomitant]
  14. TASIGNA [Suspect]
     Route: 048
     Dates: start: 20110202
  15. COUMADIN [Concomitant]
  16. DIGOXIN [Concomitant]
  17. LOPRESSOR [Concomitant]
     Dosage: 100 MG, UNK
  18. IBUPROFEN (ADVIL) [Concomitant]
  19. WARFARIN SODIUM [Concomitant]
  20. ZANTAC [Concomitant]
  21. VALTREX [Concomitant]
     Dosage: 1000 MG, 3 TIMES DAILY FOR 7 DAYS
  22. DABIGATRAN ETEXILATE [Concomitant]
     Dosage: 150 MG, BID
     Route: 048
  23. FINASTERIDE [Concomitant]

REACTIONS (15)
  - HERPES ZOSTER [None]
  - RIB FRACTURE [None]
  - PRURITUS [None]
  - PULMONARY FIBROSIS [None]
  - RASH PRURITIC [None]
  - PAIN [None]
  - FATIGUE [None]
  - LYMPHADENOPATHY MEDIASTINAL [None]
  - ATRIAL FIBRILLATION [None]
  - CEREBROVASCULAR ACCIDENT [None]
  - COUGH [None]
  - COMPRESSION FRACTURE [None]
  - CHEST PAIN [None]
  - RASH [None]
  - OEDEMA PERIPHERAL [None]
